FAERS Safety Report 5176947-8 (Version None)
Quarter: 2006Q4

REPORT INFORMATION
  Report Type: 
  Country: None (occurrence: None)
  Receive Date: 20061207
  Receipt Date: 20061201
  Transmission Date: 20070319
  Serious: Yes (Hospitalization, Other)
  Sender: FDA-Public Use
  Company Number: FRWYE721401DEC06

PATIENT
  Age: 53 Year
  Sex: Male

DRUGS (3)
  1. ADVIL [Suspect]
     Indication: TOOTH INFECTION
     Dosage: ORAL
     Route: 048
     Dates: start: 20060501, end: 20060515
  2. EFFERALGAN CODEINE (PARACETAMOL/CODEINE PHOSPHATE, , 0) [Suspect]
     Indication: TOOTH INFECTION
     Dosage: ORAL
     Route: 048
     Dates: start: 20060501, end: 20060515
  3. RODOGYL (METRONIDAZOLE/SPIRAMYCIN) [Concomitant]

REACTIONS (2)
  - EOSINOPHILIA [None]
  - OEDEMATOUS PANCREATITIS [None]
